FAERS Safety Report 17670774 (Version 1)
Quarter: 2020Q2

REPORT INFORMATION
  Report Type: Spontaneous
  Country: US (occurrence: US)
  Receive Date: 20200415
  Receipt Date: 20200415
  Transmission Date: 20200713
  Serious: Yes (Disabling)
  Sender: FDA-Public Use
  Company Number: None

PATIENT
  Age: 41 Year
  Sex: Female
  Weight: 87.3 kg

DRUGS (12)
  1. VICKS NON ALCHOLIC COUGH MEDICINE [Concomitant]
  2. VITAMIN D3 [Concomitant]
     Active Substance: CHOLECALCIFEROL
  3. VITAMIN B12 [Concomitant]
     Active Substance: CYANOCOBALAMIN
  4. PREDNISONE. [Concomitant]
     Active Substance: PREDNISONE
  5. D WITH CITRATE [Concomitant]
  6. TUMERIC [Concomitant]
     Active Substance: HERBALS\TURMERIC
  7. ZITHROMAX [Concomitant]
     Active Substance: AZITHROMYCIN DIHYDRATE
  8. ALBUTEROL INHALER [Concomitant]
     Active Substance: ALBUTEROL
  9. MULTIVITAMIN [Concomitant]
     Active Substance: VITAMINS
  10. NEOMYCIN AND POLYMYXIN B SULFATES AND HYDROCORTISONE [Suspect]
     Active Substance: HYDROCORTISONE\NEOMYCIN SULFATE\POLYMYXIN B SULFATE
     Indication: EAR INFECTION
     Dosage: ?          QUANTITY:4 DROP(S);?
     Route: 001
     Dates: start: 20200321, end: 20200328
  11. SUGAR FREE COUGH DROPS [Concomitant]
  12. TRAZODONE [Concomitant]
     Active Substance: TRAZODONE HYDROCHLORIDE

REACTIONS (26)
  - Condition aggravated [None]
  - Drug ineffective [None]
  - Pain [None]
  - Sinus pain [None]
  - Oropharyngeal pain [None]
  - Tremor [None]
  - Chest pain [None]
  - Cough [None]
  - Nausea [None]
  - Vomiting [None]
  - Deafness [None]
  - Tinnitus [None]
  - Flatulence [None]
  - Dry mouth [None]
  - Amnesia [None]
  - Diarrhoea [None]
  - Chest discomfort [None]
  - Insomnia [None]
  - Nasal congestion [None]
  - Dry throat [None]
  - Migraine [None]
  - Aphonia [None]
  - Fatigue [None]
  - Dizziness [None]
  - Dyspnoea [None]
  - Decreased appetite [None]

NARRATIVE: CASE EVENT DATE: 20200328
